FAERS Safety Report 18573803 (Version 2)
Quarter: 2021Q1

REPORT INFORMATION
  Report Type: Report from Study
  Country: CA (occurrence: CA)
  Receive Date: 20201203
  Receipt Date: 20210304
  Transmission Date: 20210419
  Serious: Yes (Hospitalization)
  Sender: FDA-Public Use
  Company Number: CA-JNJFOC-20201150290

PATIENT
  Age: 54 Year
  Sex: Male
  Weight: 74.84 kg

DRUGS (2)
  1. STELARA [Suspect]
     Active Substance: USTEKINUMAB
     Indication: PSORIATIC ARTHROPATHY
     Route: 058
     Dates: start: 20190910
  2. STELARA [Suspect]
     Active Substance: USTEKINUMAB

REACTIONS (10)
  - Jaw fracture [Recovering/Resolving]
  - Headache [Recovering/Resolving]
  - Physical assault [Recovering/Resolving]
  - Wrist fracture [Recovering/Resolving]
  - Facial bones fracture [Recovering/Resolving]
  - Foot fracture [Recovering/Resolving]
  - Skull fracture [Recovering/Resolving]
  - Neuralgia [Recovering/Resolving]
  - Skin laceration [Recovering/Resolving]
  - Cerebral haemorrhage [Recovering/Resolving]

NARRATIVE: CASE EVENT DATE: 202010
